FAERS Safety Report 6638697-8 (Version None)
Quarter: 2010Q1

REPORT INFORMATION
  Report Type: 
  Country: None (occurrence: None)
  Receive Date: 20100302
  Receipt Date: 20100224
  Transmission Date: 20100710
  Serious: Yes (Hospitalization, Disabling)
  Sender: FDA-Public Use
  Company Number: 006926

PATIENT
  Sex: Female
  Weight: 70 kg

DRUGS (24)
  1. KEPPRA [Suspect]
     Indication: ENCEPHALITIS
     Dosage: SEE IMAGE
     Route: 048
     Dates: start: 20070510, end: 20070515
  2. KEPPRA [Suspect]
     Indication: EPILEPSY
     Dosage: SEE IMAGE
     Route: 048
     Dates: start: 20070510, end: 20070515
  3. KEPPRA [Suspect]
     Indication: ENCEPHALITIS
     Dosage: SEE IMAGE
     Route: 048
     Dates: start: 20070530, end: 20070605
  4. KEPPRA [Suspect]
     Indication: EPILEPSY
     Dosage: SEE IMAGE
     Route: 048
     Dates: start: 20070530, end: 20070605
  5. KEPPRA [Suspect]
     Indication: ENCEPHALITIS
     Dosage: SEE IMAGE
     Route: 048
     Dates: start: 20090516, end: 20090522
  6. KEPPRA [Suspect]
     Indication: EPILEPSY
     Dosage: SEE IMAGE
     Route: 048
     Dates: start: 20090516, end: 20090522
  7. KEPPRA [Suspect]
     Indication: ENCEPHALITIS
     Dosage: SEE IMAGE
     Route: 048
     Dates: start: 20090523, end: 20090529
  8. KEPPRA [Suspect]
     Indication: EPILEPSY
     Dosage: SEE IMAGE
     Route: 048
     Dates: start: 20090523, end: 20090529
  9. KEPPRA [Suspect]
     Indication: ENCEPHALITIS
     Dosage: SEE IMAGE
     Route: 048
     Dates: start: 20070606
  10. KEPPRA [Suspect]
     Indication: EPILEPSY
     Dosage: SEE IMAGE
     Route: 048
     Dates: start: 20070606
  11. KEPPRA [Suspect]
     Indication: ENCEPHALITIS
     Dosage: SEE IMAGE
     Route: 048
     Dates: start: 20090101
  12. KEPPRA [Suspect]
     Indication: EPILEPSY
     Dosage: SEE IMAGE
     Route: 048
     Dates: start: 20090101
  13. KEPPRA [Suspect]
     Indication: ENCEPHALITIS
     Dosage: SEE IMAGE
     Route: 048
     Dates: start: 20090301
  14. KEPPRA [Suspect]
     Indication: EPILEPSY
     Dosage: SEE IMAGE
     Route: 048
     Dates: start: 20090301
  15. KEPPRA [Suspect]
     Indication: ENCEPHALITIS
     Dosage: SEE IMAGE
     Route: 048
     Dates: start: 20090323
  16. KEPPRA [Suspect]
     Indication: EPILEPSY
     Dosage: SEE IMAGE
     Route: 048
     Dates: start: 20090323
  17. VIMPAT [Suspect]
     Indication: EPILEPSY
     Dates: end: 20090319
  18. OXCARBAZEPINE [Concomitant]
  19. METOPROLOL [Concomitant]
  20. CYCLOPHOSPHAMIDE [Concomitant]
  21. PANTOPRAZOLE SODIUM [Concomitant]
  22. DECORIN [Concomitant]
  23. FOLIC ACID [Concomitant]
  24. FRISIUM [Concomitant]

REACTIONS (17)
  - ALLERGY TO METALS [None]
  - APHASIA [None]
  - CAESAREAN SECTION [None]
  - COGNITIVE DISORDER [None]
  - CONVERSION DISORDER [None]
  - CONVULSION [None]
  - DEPRESSION [None]
  - DRUG EXPOSURE DURING PREGNANCY [None]
  - EPILEPSY [None]
  - HOUSE DUST ALLERGY [None]
  - MEMORY IMPAIRMENT [None]
  - NORMOCHROMIC NORMOCYTIC ANAEMIA [None]
  - PREGNANCY [None]
  - PRODUCT QUALITY ISSUE [None]
  - TABLET ISSUE [None]
  - THYMUS ENLARGEMENT [None]
  - VENTRICULAR EXTRASYSTOLES [None]
